FAERS Safety Report 6218102-6 (Version None)
Quarter: 2009Q2

REPORT INFORMATION
  Report Type: 
  Country: None (occurrence: None)
  Receive Date: 20090608
  Receipt Date: 20090527
  Transmission Date: 20091009
  Serious: Yes (Other)
  Sender: FDA-Public Use
  Company Number: PHEH2009US05353

PATIENT
  Sex: Female
  Weight: 93.1 kg

DRUGS (4)
  1. EXJADE [Suspect]
     Indication: SICKLE CELL ANAEMIA
     Dosage: 3000 MG, QD
     Route: 048
     Dates: start: 20080501
  2. DESFERAL [Suspect]
     Indication: IRON OVERLOAD
     Dosage: 1200 MG, UNK
     Route: 058
     Dates: start: 20080730
  3. FOLIC ACID [Concomitant]
     Dosage: 1 MG, BID
     Route: 048
  4. PHENERGAN [Concomitant]
     Dosage: UNK
     Route: 048

REACTIONS (5)
  - ANAEMIA [None]
  - ATELECTASIS [None]
  - GRANULOMA [None]
  - LUNG INFILTRATION [None]
  - SERUM FERRITIN INCREASED [None]
